FAERS Safety Report 23217140 (Version 2)
Quarter: 2024Q1

REPORT INFORMATION
  Report Type: Report from Study
  Country: US (occurrence: US)
  Receive Date: 20231122
  Receipt Date: 20240108
  Transmission Date: 20240409
  Serious: Yes (Other)
  Sender: FDA-Public Use
  Company Number: US-002147023-NVSC2023US245403

PATIENT
  Sex: Male

DRUGS (2)
  1. ENTRESTO [Suspect]
     Active Substance: SACUBITRIL\VALSARTAN
     Indication: Product used for unknown indication
     Dosage: 1 DOSAGE FORM, BID
     Route: 065
     Dates: start: 202304
  2. ENTRESTO [Suspect]
     Active Substance: SACUBITRIL\VALSARTAN
     Dosage: HALF PILL (1/2), BID
     Route: 065

REACTIONS (6)
  - Atrial fibrillation [Unknown]
  - Weight fluctuation [Unknown]
  - Dyspnoea [Unknown]
  - Fatigue [Unknown]
  - Blood calcium decreased [Unknown]
  - Wrong technique in product usage process [Unknown]
